FAERS Safety Report 10475071 (Version 1)
Quarter: 2014Q3

REPORT INFORMATION
  Report Type: Spontaneous
  Country: US (occurrence: None)
  Receive Date: 20140924
  Receipt Date: 20140924
  Transmission Date: 20150326
  Serious: No
  Sender: FDA-Public Use
  Company Number: None

PATIENT
  Age: 61 Year
  Sex: Male
  Weight: 108.86 kg

DRUGS (1)
  1. MIRALAX [Suspect]
     Active Substance: POLYETHYLENE GLYCOL 3350
     Indication: CONSTIPATION
     Dosage: 17 G, ONCE DAILY, TAKEN BY MOUTH
     Route: 048

REACTIONS (11)
  - Memory impairment [None]
  - Speech disorder [None]
  - Abnormal behaviour [None]
  - Tremor [None]
  - Fatigue [None]
  - Depression [None]
  - Confusional state [None]
  - Sleep apnoea syndrome [None]
  - Thinking abnormal [None]
  - Mental disorder [None]
  - Anger [None]

NARRATIVE: CASE EVENT DATE: 20140922
